FAERS Safety Report 7288699 (Version 5)
Quarter: 2016Q1

REPORT INFORMATION
  Report Type: Spontaneous
  Country: EE (occurrence: EE)
  Receive Date: 20100222
  Receipt Date: 20160218
  Transmission Date: 20160526
  Serious: Yes (Death, Congenital Anomaly, Other)
  Sender: FDA-Public Use
  Company Number: EE-BRISTOL-MYERS SQUIBB COMPANY-14976393

PATIENT
  Sex: Female
  Weight: 2.21 kg

DRUGS (3)
  1. METFORMIN HYDROCHLORIDE. [Suspect]
     Active Substance: METFORMIN HYDROCHLORIDE
     Indication: PRODUCT USED FOR UNKNOWN INDICATION
     Dosage: UNK
     Route: 064
  2. MONOPRIL [Suspect]
     Active Substance: FOSINOPRIL SODIUM
     Indication: PRODUCT USED FOR UNKNOWN INDICATION
     Dosage: 10 MG, QD
     Route: 064
  3. TEVETEN [Suspect]
     Active Substance: EPROSARTAN MESYLATE
     Indication: PRODUCT USED FOR UNKNOWN INDICATION
     Dosage: 600 MG, QD
     Route: 064

REACTIONS (10)
  - Limb malformation [Unknown]
  - Low birth weight baby [Unknown]
  - Renal failure [Fatal]
  - Cardiopulmonary failure [Fatal]
  - Foetal growth restriction [Unknown]
  - Foetal distress syndrome [Unknown]
  - Foetal exposure during pregnancy [Unknown]
  - Pulmonary hypoplasia [Fatal]
  - Skull malformation [Unknown]
  - Hypotonia [Unknown]
